FAERS Safety Report 21187593 (Version 4)
Quarter: 2022Q4

REPORT INFORMATION
  Report Type: Report from Study
  Country: US (occurrence: US)
  Receive Date: 20220808
  Receipt Date: 20221115
  Transmission Date: 20230113
  Serious: Yes (Other)
  Sender: FDA-Public Use
  Company Number: US-ABBVIE-22K-163-4411215-00

PATIENT
  Sex: Female

DRUGS (3)
  1. IMBRUVICA [Suspect]
     Active Substance: IBRUTINIB
     Indication: Chronic lymphocytic leukaemia
     Dosage: FORM STRENGTH 280
     Route: 048
     Dates: start: 20210821, end: 202209
  2. IMBRUVICA [Suspect]
     Active Substance: IBRUTINIB
     Indication: Chronic lymphocytic leukaemia
     Dosage: FORM STRENGTH 480
     Route: 048
     Dates: start: 20210621, end: 20210821
  3. IMBRUVICA [Suspect]
     Active Substance: IBRUTINIB
     Indication: Chronic lymphocytic leukaemia
     Dosage: FORM STRENGTH 280
     Route: 048
     Dates: start: 20221005

REACTIONS (20)
  - Post procedural haemorrhage [Unknown]
  - Guillain-Barre syndrome [Unknown]
  - Arterial injury [Unknown]
  - Lymphadenopathy [Unknown]
  - Headache [Unknown]
  - Miller Fisher syndrome [Unknown]
  - Rheumatoid arthritis [Unknown]
  - Pharyngeal disorder [Unknown]
  - Sinonasal obstruction [Unknown]
  - Nausea [Unknown]
  - Dysgeusia [Unknown]
  - Hypertension [Unknown]
  - Sinusitis [Unknown]
  - Decreased appetite [Unknown]
  - Post procedural complication [Unknown]
  - Dizziness [Unknown]
  - Depressed mood [Unknown]
  - Surgery [Unknown]
  - Weight decreased [Unknown]
  - COVID-19 [Recovering/Resolving]

NARRATIVE: CASE EVENT DATE: 20220101
